FAERS Safety Report 25021756 (Version 1)
Quarter: 2025Q1

REPORT INFORMATION
  Report Type: Spontaneous
  Country: US (occurrence: US)
  Receive Date: 20250228
  Receipt Date: 20250228
  Transmission Date: 20250409
  Serious: Yes (Other)
  Sender: Haleon PLC
  Company Number: US-HALEON-2230181

PATIENT
  Sex: Male

DRUGS (1)
  1. THERAFLU EXPRESSMAX NIGHTTIME SEVERE COLD AND COUGH [Suspect]
     Active Substance: ACETAMINOPHEN\DIPHENHYDRAMINE HYDROCHLORIDE\PHENYLEPHRINE HYDROCHLORIDE
     Indication: Influenza
     Dates: start: 20250207

REACTIONS (2)
  - Urinary retention [Recovering/Resolving]
  - Renal disorder [Unknown]
